FAERS Safety Report 9680096 (Version 2)
Quarter: 2013Q4

REPORT INFORMATION
  Report Type: Spontaneous
  Country: AR (occurrence: AR)
  Receive Date: 20131111
  Receipt Date: 20131111
  Transmission Date: 20140711
  Serious: Yes (Hospitalization, Disabling)
  Sender: FDA-Public Use
  Company Number: AR-AMGEN-ARGSP2013003358

PATIENT
  Age: 77 Year
  Sex: Female

DRUGS (2)
  1. ENBREL [Suspect]
     Indication: RHEUMATOID ARTHRITIS
     Dosage: 50 MG, WEEKLY
     Route: 065
     Dates: start: 20090217
  2. ARTRAIT                            /00113801/ [Concomitant]
     Dosage: UNK

REACTIONS (3)
  - Abasia [Not Recovered/Not Resolved]
  - Hearing disability [Unknown]
  - Pneumonia [Recovered/Resolved]
